FAERS Safety Report 4778192-4 (Version None)
Quarter: 2005Q3

REPORT INFORMATION
  Report Type: 
  Country: None (occurrence: None)
  Receive Date: 20050926
  Receipt Date: 20010731
  Transmission Date: 20060218
  Serious: Yes (Other)
  Sender: FDA-Public Use
  Company Number: US-BRISTOL-MYERS SQUIBB COMPANY-10939718

PATIENT
  Sex: Female

DRUGS (2)
  1. STADOL [Suspect]
     Indication: HEADACHE
     Dosage: FIRST PRESCRIBED STADOL DURING THE EARLY 1990'S ^PRESCRIBED OVER 15 YEARS OR SO^
  2. STADOL [Suspect]
     Indication: RENAL PAIN
     Dosage: FIRST PRESCRIBED STADOL DURING THE EARLY 1990'S ^PRESCRIBED OVER 15 YEARS OR SO^

REACTIONS (1)
  - DRUG DEPENDENCE [None]
